FAERS Safety Report 6697247-0 (Version None)
Quarter: 2010Q2

REPORT INFORMATION
  Report Type: 
  Country: None (occurrence: None)
  Receive Date: 20100426
  Receipt Date: 20100414
  Transmission Date: 20101027
  Serious: Yes (Other)
  Sender: FDA-Public Use
  Company Number: DE-PFIZER INC-2010040906

PATIENT
  Age: 60 Year
  Sex: Female
  Weight: 68 kg

DRUGS (2)
  1. NEURONTIN [Suspect]
     Indication: NEURALGIA
     Dosage: UNK
  2. TILIDINE [Suspect]
     Indication: NEURALGIA
     Dosage: UNK, AS NEEDED
     Route: 048

REACTIONS (3)
  - COAGULOPATHY [None]
  - FACTOR VIII DEFICIENCY [None]
  - HAEMORRHAGIC DIATHESIS [None]
